FAERS Safety Report 10451596 (Version 2)
Quarter: 2015Q4

REPORT INFORMATION
  Report Type: Spontaneous
  Country: US (occurrence: US)
  Receive Date: 20140914
  Receipt Date: 20151211
  Transmission Date: 20160304
  Serious: No
  Sender: FDA-Public Use
  Company Number: US-MALLINCKRODT-T201402618

PATIENT
  Age: 45 Year
  Sex: Female

DRUGS (1)
  1. XARTEMIS XR [Suspect]
     Active Substance: ACETAMINOPHEN\OXYCODONE HYDROCHLORIDE
     Indication: PROCEDURAL PAIN
     Dosage: 7.5/325 MG, BID
     Route: 048
     Dates: start: 20140619, end: 20140622

REACTIONS (3)
  - Hyperhidrosis [Recovering/Resolving]
  - Eye irritation [Recovered/Resolved]
  - Burning sensation [Recovering/Resolving]

NARRATIVE: CASE EVENT DATE: 20140621
